FAERS Safety Report 7462108-6 (Version None)
Quarter: 2011Q2

REPORT INFORMATION
  Report Type: 
  Country: None (occurrence: None)
  Receive Date: 20110506
  Receipt Date: 20110321
  Transmission Date: 20111010
  Serious: Yes (Other)
  Sender: FDA-Public Use
  Company Number: US-BAYER-2010-002143

PATIENT
  Sex: Female
  Weight: 116.1 kg

DRUGS (10)
  1. TYLENOL W/ CODEINE NO. 3 [Concomitant]
  2. VITAMINS [Concomitant]
  3. OMEPRAZOL [Concomitant]
     Dosage: UNK
     Dates: start: 20030216
  4. DIFLUCAN [Concomitant]
     Dosage: UNK
     Dates: start: 20030303
  5. FIBERCON [Concomitant]
  6. HYDROCODONE BITARTRATE AND ACETAMINOPHEN [Concomitant]
     Dosage: UNK
     Dates: start: 20040302
  7. VICODIN [Concomitant]
  8. MEDROXYPROGESTERONE ACETATE [Concomitant]
     Dosage: UNK
     Dates: start: 20030411
  9. YASMIN [Suspect]
     Indication: PRODUCT USED FOR UNKNOWN INDICATION
     Dosage: UNK
     Dates: start: 20030401, end: 20091001
  10. BACLOFEN [Concomitant]
     Dosage: UNK
     Dates: start: 20040302

REACTIONS (2)
  - GALLBLADDER DISORDER [None]
  - GALLBLADDER INJURY [None]
